FAERS Safety Report 18444468 (Version 1)
Quarter: 2020Q4

REPORT INFORMATION
  Report Type: Spontaneous
  Country: IN (occurrence: IN)
  Receive Date: 20201030
  Receipt Date: 20201030
  Transmission Date: 20210114
  Serious: Yes (Hospitalization)
  Sender: FDA-Public Use
  Company Number: IN-LUPIN LIMITED-2020-05542

PATIENT
  Age: 46 Year
  Sex: Female

DRUGS (3)
  1. ATENOLOL. [Concomitant]
     Active Substance: ATENOLOL
     Indication: PALPITATIONS
     Dosage: UNK
     Route: 065
  2. LEVOTHYROXINE. [Suspect]
     Active Substance: LEVOTHYROXINE
     Indication: HYPOTHYROIDISM
     Dosage: 125 MICROGRAM
     Route: 065
  3. LEVOTHYROXINE. [Suspect]
     Active Substance: LEVOTHYROXINE
     Dosage: 225 MICROGRAM, QD
     Route: 065

REACTIONS (1)
  - Drug ineffective [Unknown]
